APPROVED DRUG PRODUCT: SUMATRIPTAN SUCCINATE
Active Ingredient: SUMATRIPTAN SUCCINATE
Strength: EQ 4MG BASE/0.5ML (EQ 8MG BASE/ML)
Dosage Form/Route: INJECTABLE;SUBCUTANEOUS
Application: A078319 | Product #001
Applicant: ANTARES PHARMA INC
Approved: Dec 10, 2015 | RLD: No | RS: No | Type: DISCN